FAERS Safety Report 8823104 (Version 2)
Quarter: 2015Q1

REPORT INFORMATION
  Report Type: Report from Study
  Country: US (occurrence: US)
  Receive Date: 20121003
  Receipt Date: 20150204
  Transmission Date: 20150721
  Serious: Yes (Death, Hospitalization)
  Sender: FDA-Public Use
  Company Number: US-ROCHE-1132000

PATIENT
  Age: 72 Year
  Sex: Male
  Weight: 67.65 kg

DRUGS (16)
  1. ADRIA [Concomitant]
     Route: 065
  2. CYTOXAN [Concomitant]
     Active Substance: CYCLOPHOSPHAMIDE
     Route: 065
  3. DECADRON [Concomitant]
     Active Substance: DEXAMETHASONE
     Route: 048
  4. ZOFRAN [Concomitant]
     Active Substance: ONDANSETRON HYDROCHLORIDE
     Route: 065
  5. CYTOXAN [Concomitant]
     Active Substance: CYCLOPHOSPHAMIDE
     Route: 065
  6. SOLU-MEDROL [Concomitant]
     Active Substance: METHYLPREDNISOLONE SODIUM SUCCINATE
     Route: 065
  7. ADRIA [Concomitant]
     Route: 065
  8. PLATINOL [Concomitant]
     Active Substance: CISPLATIN
     Route: 065
  9. KYTRIL [Suspect]
     Active Substance: GRANISETRON HYDROCHLORIDE
     Indication: PRODUCT USED FOR UNKNOWN INDICATION
     Route: 065
     Dates: start: 19960919
  10. MESNA. [Concomitant]
     Active Substance: MESNA
  11. METHOTREXATE [Concomitant]
     Active Substance: METHOTREXATE
     Route: 065
  12. VINCRISTINE [Concomitant]
     Active Substance: VINCRISTINE
  13. HEXADROL [Concomitant]
     Active Substance: DEXAMETHASONE
     Route: 065
  14. ETOPOSIDE. [Concomitant]
     Active Substance: ETOPOSIDE
  15. RITUXAN [Suspect]
     Active Substance: RITUXIMAB
     Indication: NON-HODGKIN^S LYMPHOMA
     Route: 065
  16. CYTOXAN [Concomitant]
     Active Substance: CYCLOPHOSPHAMIDE
     Route: 065

REACTIONS (13)
  - Pyrexia [Unknown]
  - Asthenia [Unknown]
  - Eosinophilia [Unknown]
  - Dizziness [Unknown]
  - Infection [Unknown]
  - Lymphoma [Unknown]
  - Diarrhoea [Unknown]
  - Anaemia [Unknown]
  - Hyponatraemia [Unknown]
  - Dehydration [Unknown]
  - Death [Fatal]
  - Orthostatic hypotension [Unknown]
  - Disease progression [Unknown]

NARRATIVE: CASE EVENT DATE: 19971215
